FAERS Safety Report 6956721-X (Version None)
Quarter: 2010Q3

REPORT INFORMATION
  Report Type: 
  Country: None (occurrence: None)
  Receive Date: 20100830
  Receipt Date: 20100817
  Transmission Date: 20110219
  Serious: Yes (Other)
  Sender: FDA-Public Use
  Company Number: PHHY2010US44887

PATIENT
  Sex: Female

DRUGS (5)
  1. RECLAST [Suspect]
     Dosage: UNK
     Dates: start: 20090424
  2. RECLAST [Suspect]
     Dosage: UNK
     Dates: start: 20100401
  3. LEVOTHYROXINE SODIUM [Concomitant]
  4. DILTIAZEMI HYDROCHLORIDUM [Concomitant]
  5. CLONAZEPAM [Concomitant]

REACTIONS (2)
  - BONE PAIN [None]
  - PELVIC FRACTURE [None]
